FAERS Safety Report 19682493 (Version 2)
Quarter: 2021Q3

REPORT INFORMATION
  Report Type: Report from Study
  Country: None (occurrence: RU)
  Receive Date: 20210811
  Receipt Date: 20210831
  Transmission Date: 20211014
  Serious: Yes (Hospitalization, Disabling)
  Sender: FDA-Public Use
  Company Number: RU-ABBVIE-21K-251-4029132-00

PATIENT
  Age: 49 Year
  Sex: Male
  Weight: 86 kg

DRUGS (1)
  1. VENCLEXTA [Suspect]
     Active Substance: VENETOCLAX
     Indication: CHRONIC LYMPHOCYTIC LEUKAEMIA
     Route: 048
     Dates: start: 20200804

REACTIONS (9)
  - Blood calcium increased [Recovered/Resolved]
  - Beta 2 microglobulin increased [Not Recovered/Not Resolved]
  - Creatinine renal clearance increased [Recovered/Resolved]
  - Hypercalcaemia [Recovered/Resolved]
  - Blood uric acid increased [Unknown]
  - Azotaemia [Recovered/Resolved]
  - Haemoglobin decreased [Not Recovered/Not Resolved]
  - Anaemia [Not Recovered/Not Resolved]
  - Blood creatinine increased [Recovered/Resolved]

NARRATIVE: CASE EVENT DATE: 20210604
